FAERS Safety Report 8164480 (Version 2)
Quarter: 2012Q4

REPORT INFORMATION
  Report Type: 
  Country: MX (occurrence: MX)
  Receive Date: 20110930
  Receipt Date: 20121113
  Transmission Date: 20130627
  Serious: Yes (Other)
  Sender: FDA-Public Use
  Company Number: PHHY2011MX84666

PATIENT
  Age: 56 Year
  Sex: Female

DRUGS (4)
  1. RASILEZ [Suspect]
     Indication: HYPERTENSION
     Dosage: 1 DF, UNK
     Dates: start: 20110503
  2. METFORMIN [Concomitant]
  3. INSULIN [Concomitant]
     Dosage: 40 IU, 30 IU in the morning and 10 IU in the evening
  4. MICARDIS [Concomitant]
     Dosage: 1 DF, per day
     Dates: start: 201203

REACTIONS (4)
  - Blindness [Not Recovered/Not Resolved]
  - Fall [Unknown]
  - Hip fracture [Not Recovered/Not Resolved]
  - Asthenia [Not Recovered/Not Resolved]
